FAERS Safety Report 8962590 (Version 1)
Quarter: 2012Q4

REPORT INFORMATION
  Report Type: Spontaneous
  Country: US (occurrence: None)
  Receive Date: 20121211
  Receipt Date: 20121211
  Transmission Date: 20130627
  Serious: No
  Sender: FDA-Public Use
  Company Number: None

PATIENT
  Age: 12 Year
  Sex: Male

DRUGS (1)
  1. EXJADE [Suspect]
     Indication: HEMOCHROMATOSIS
     Dates: start: 20121121, end: 20121205

REACTIONS (4)
  - Pruritus [None]
  - Urticaria [None]
  - Dehydration [None]
  - Hypersensitivity [None]
